FAERS Safety Report 7869457-8 (Version None)
Quarter: 2011Q4

REPORT INFORMATION
  Report Type: 
  Country: None (occurrence: None)
  Receive Date: 20111028
  Receipt Date: 20110104
  Transmission Date: 20120403
  Serious: No
  Sender: FDA-Public Use
  Company Number: US-AMGEN-USASP2011000460

PATIENT
  Sex: Female

DRUGS (1)
  1. ENBREL [Suspect]
     Indication: PSORIATIC ARTHROPATHY
     Dosage: 50 MG, QWK
     Dates: start: 20071214

REACTIONS (5)
  - PRODUCTIVE COUGH [None]
  - NECK PAIN [None]
  - SINUS HEADACHE [None]
  - CHEST PAIN [None]
  - LYMPHADENOPATHY [None]
